FAERS Safety Report 19126907 (Version 2)
Quarter: 2021Q2

REPORT INFORMATION
  Report Type: Report from Study
  Country: None (occurrence: MX)
  Receive Date: 20210412
  Receipt Date: 20210601
  Transmission Date: 20210717
  Serious: Yes (Other)
  Sender: FDA-Public Use
  Company Number: MX-ABBVIE-21K-107-3808841-00

PATIENT
  Sex: Female

DRUGS (1)
  1. HUMIRA [Suspect]
     Active Substance: ADALIMUMAB
     Indication: COLITIS ULCERATIVE
     Route: 058
     Dates: start: 20120131, end: 202101

REACTIONS (6)
  - Cardiovascular disorder [Unknown]
  - Postoperative wound complication [Recovering/Resolving]
  - Skin ulcer [Recovering/Resolving]
  - Pain in extremity [Unknown]
  - Thrombosis [Unknown]
  - Induration [Unknown]

NARRATIVE: CASE EVENT DATE: 2021
